FAERS Safety Report 6925145-3 (Version None)
Quarter: 2010Q3

REPORT INFORMATION
  Report Type: 
  Country: None (occurrence: None)
  Receive Date: 20100816
  Receipt Date: 20100805
  Transmission Date: 20110219
  Serious: Yes (Hospitalization)
  Sender: FDA-Public Use
  Company Number: DE-GENZYME-CERZ-1001385

PATIENT

DRUGS (3)
  1. CEREZYME [Suspect]
     Indication: GAUCHER'S DISEASE
     Dosage: 2000 U, Q2W
     Route: 042
  2. CEREZYME [Suspect]
     Dosage: 600 U, UNK
     Route: 042
     Dates: start: 19970501
  3. TARDYFERON [Concomitant]
     Indication: ANAEMIA
     Dosage: UNK
     Dates: start: 20100701

REACTIONS (3)
  - NAUSEA [None]
  - VAGINAL HAEMORRHAGE [None]
  - VICTIM OF SPOUSAL ABUSE [None]
